FAERS Safety Report 13946811 (Version 1)
Quarter: 2017Q3

REPORT INFORMATION
  Report Type: Spontaneous
  Country: US (occurrence: US)
  Receive Date: 20170907
  Receipt Date: 20170907
  Transmission Date: 20171128
  Serious: Yes (Other)
  Sender: FDA-Public Use
  Company Number: US-TEVA-804159USA

PATIENT
  Sex: Male

DRUGS (1)
  1. FLUDROCORTISONE [Suspect]
     Active Substance: FLUDROCORTISONE
     Indication: HYPOTENSION
     Route: 065

REACTIONS (4)
  - Blood pressure increased [Unknown]
  - Fluid retention [Unknown]
  - Product use in unapproved indication [Unknown]
  - Pneumonia [Unknown]
